FAERS Safety Report 4878541-2 (Version None)
Quarter: 2006Q1

REPORT INFORMATION
  Report Type: 
  Country: None (occurrence: None)
  Receive Date: 20060110
  Receipt Date: 20051230
  Transmission Date: 20060701
  Serious: Yes (Hospitalization, Other)
  Sender: FDA-Public Use
  Company Number: KII-2005-0020484

PATIENT
  Age: 27 Year
  Sex: Female

DRUGS (6)
  1. MORPHINE SULFATE [Suspect]
     Indication: PROCEDURAL PAIN
     Dosage: INTRAVENOUS
     Route: 042
  2. KETOROLAC [Suspect]
     Indication: PROCEDURAL PAIN
     Dosage: INTRAVENOUS
     Route: 042
  3. OTHER HYPNOTICS AND SEDATIVES [Suspect]
     Indication: SEDATIVE THERAPY
     Dosage: INTRAVENOUS
     Route: 042
  4. BENZODIAZEPINE DERIVATIVES [Suspect]
     Indication: SEDATIVE THERAPY
     Dosage: INTRAVENOUS
     Route: 042
  5. FENTANYL [Suspect]
     Indication: PROCEDURAL PAIN
     Dosage: INTRAVENOUS
     Route: 042
  6. ASPIRIN [Concomitant]

REACTIONS (8)
  - ACUTE PULMONARY OEDEMA [None]
  - ANAESTHETIC COMPLICATION [None]
  - CARDIAC FAILURE [None]
  - CARDIOMYOPATHY [None]
  - CHILLS [None]
  - HYPOTENSION [None]
  - OXYGEN SATURATION DECREASED [None]
  - PROCEDURAL COMPLICATION [None]
